FAERS Safety Report 7252469-5 (Version None)
Quarter: 2011Q1

REPORT INFORMATION
  Report Type: 
  Country: None (occurrence: None)
  Receive Date: 20110129
  Receipt Date: 20110119
  Transmission Date: 20110831
  Serious: Yes (Hospitalization)
  Sender: FDA-Public Use
  Company Number: FR-AMGEN-FRASP2011002914

PATIENT
  Age: 58 Year
  Sex: Female
  Weight: 73 kg

DRUGS (4)
  1. TAXOTERE [Concomitant]
     Indication: TONSIL CANCER
     Dosage: UNK
     Dates: start: 20110111
  2. 5 FU [Concomitant]
     Dosage: UNK
     Dates: start: 20110111
  3. NEULASTA [Suspect]
     Indication: CHEMOTHERAPY
     Dosage: UNK
  4. CARBOPLATIN [Concomitant]
     Indication: TONSIL CANCER
     Dosage: UNK
     Dates: start: 20110111

REACTIONS (7)
  - ANGIOEDEMA [None]
  - PRURITUS [None]
  - FALL [None]
  - MALAISE [None]
  - URTICARIA [None]
  - ANAPHYLACTIC SHOCK [None]
  - BRADYCARDIA [None]
